FAERS Safety Report 12258042 (Version 2)
Quarter: 2016Q2

REPORT INFORMATION
  Report Type: Spontaneous
  Country: US (occurrence: US)
  Receive Date: 20160412
  Receipt Date: 20160613
  Transmission Date: 20160815
  Serious: No
  Sender: FDA-Public Use
  Company Number: US-PFIZER INC-2016162439

PATIENT
  Age: 54 Year
  Sex: Female
  Weight: 51 kg

DRUGS (10)
  1. VITAMIN E [Concomitant]
     Active Substance: .ALPHA.-TOCOPHEROL
     Indication: SUPPLEMENTATION THERAPY
     Dosage: 200IU, TWO SOFT GELS DAILY
     Dates: start: 2000
  2. PRIMAL DEFENSE [Concomitant]
     Dosage: 1 CAPSULE AT NIGHT
     Route: 048
     Dates: start: 2010
  3. BLACK COHOSH [Concomitant]
     Active Substance: BLACK COHOSH
     Indication: HOT FLUSH
     Dosage: 500MG IN THE MORNING AND 250MG IN THE EVENING
     Route: 048
     Dates: start: 2015
  4. VITAMIN D3 [Concomitant]
     Active Substance: CHOLECALCIFEROL
     Indication: VITAMIN D DEFICIENCY
  5. SALMON OIL [Concomitant]
     Active Substance: FISH OIL
     Indication: ARTHROPATHY
     Dosage: 1000 MG, DAILY
     Route: 048
     Dates: start: 2000
  6. XELJANZ [Suspect]
     Active Substance: TOFACITINIB CITRATE
     Indication: RHEUMATOID ARTHRITIS
     Dosage: 5 MG, 1X/DAY
     Dates: start: 20160223, end: 201603
  7. MEGA B COMPLEX [Concomitant]
     Indication: SUPPLEMENTATION THERAPY
     Dosage: ONE SOFT GEL DAILY
     Route: 048
     Dates: start: 2013
  8. GOAT WHEY [Concomitant]
     Indication: BLOOD CALCIUM ABNORMAL
     Dosage: 2 SCOOPS (28GRAMS) POWDER ONCE DAILY
     Route: 048
     Dates: start: 201512, end: 201601
  9. VITAMIN D3 [Concomitant]
     Active Substance: CHOLECALCIFEROL
     Indication: SUPPLEMENTATION THERAPY
     Dosage: 2000 IU, DAILY
     Route: 048
     Dates: start: 2000
  10. XELJANZ [Suspect]
     Active Substance: TOFACITINIB CITRATE
     Indication: ARTHRITIS
     Dosage: 5 MG, 2X/DAY
     Route: 048
     Dates: start: 201508

REACTIONS (3)
  - Hot flush [Recovered/Resolved]
  - Condition aggravated [Recovered/Resolved]
  - Intentional product misuse [Unknown]

NARRATIVE: CASE EVENT DATE: 201508
